FAERS Safety Report 15569022 (Version 2)
Quarter: 2018Q4

REPORT INFORMATION
  Report Type: Spontaneous
  Country: RO (occurrence: RO)
  Receive Date: 20181031
  Receipt Date: 20181217
  Transmission Date: 20190205
  Serious: Yes (Other)
  Sender: FDA-Public Use
  Company Number: RO-SUN PHARMACEUTICAL INDUSTRIES LTD-2018RR-189866

PATIENT
  Age: 45 Year
  Sex: Female

DRUGS (2)
  1. IMATINIB. [Suspect]
     Active Substance: IMATINIB MESYLATE
     Indication: METASTASES TO LIVER
     Dosage: 800 MILLIGRAM, DAILY
     Route: 065
  2. IMATINIB. [Suspect]
     Active Substance: IMATINIB MESYLATE
     Indication: METASTASES TO LIVER
     Dosage: UNK
     Route: 065
     Dates: start: 201406

REACTIONS (9)
  - Necrotising fasciitis [Unknown]
  - Dermatitis [Unknown]
  - Skin necrosis [Unknown]
  - Decreased appetite [Unknown]
  - Anxiety [Unknown]
  - Drug resistance [Unknown]
  - Ecchymosis [Unknown]
  - Generalised oedema [Unknown]
  - Drug effect incomplete [Unknown]
